FAERS Safety Report 7232614-8 (Version None)
Quarter: 2011Q1

REPORT INFORMATION
  Report Type: 
  Country: None (occurrence: None)
  Receive Date: 20110119
  Receipt Date: 20110110
  Transmission Date: 20110831
  Serious: Yes (Other)
  Sender: FDA-Public Use
  Company Number: PHFR2011GB00730

PATIENT
  Age: 59 Year
  Sex: Female
  Weight: 67 kg

DRUGS (6)
  1. RIVASTIGMINE [Suspect]
     Dosage: 9.5 MG, UNK
     Route: 062
     Dates: start: 20100901, end: 20101201
  2. VENLAFAXINE HYDROCHLORIDE [Concomitant]
     Dosage: 150 MG, QD
     Route: 048
  3. FROVATRIPTAN [Concomitant]
     Dosage: 2.5 MG, PRN
     Route: 048
  4. RIVASTIGMINE [Suspect]
     Indication: DEMENTIA ALZHEIMER'S TYPE
     Dosage: 4.5 MG, UNK
     Route: 062
  5. INDERAL LA [Concomitant]
     Dosage: 80 MG, UNK
     Route: 048
  6. ACYCLOVIR [Concomitant]
     Dosage: 400 MG, BID
     Route: 048

REACTIONS (4)
  - NAUSEA [None]
  - INSOMNIA [None]
  - SLEEP TERROR [None]
  - VOMITING [None]
